FAERS Safety Report 19354645 (Version 1)
Quarter: 2021Q2

REPORT INFORMATION
  Report Type: Report from Study
  Country: None (occurrence: US)
  Receive Date: 20210602
  Receipt Date: 20210602
  Transmission Date: 20210717
  Serious: Yes (Hospitalization, Other)
  Sender: FDA-Public Use
  Company Number: US-ABBVIE-21K-163-3916514-00

PATIENT
  Age: 28 Year
  Sex: Male
  Weight: 80.81 kg

DRUGS (4)
  1. HUMIRA [Suspect]
     Active Substance: ADALIMUMAB
     Indication: PRODUCT USED FOR UNKNOWN INDICATION
     Route: 058
     Dates: start: 201703, end: 2021
  2. HUMIRA [Suspect]
     Active Substance: ADALIMUMAB
     Route: 058
     Dates: start: 20210503
  3. COVID?19 VACCINE NOS. [Concomitant]
     Active Substance: COVID-19 VACCINE NOS
     Indication: COVID-19 IMMUNISATION
     Dosage: PFIZER
     Route: 030
     Dates: start: 20210331, end: 20210331
  4. COVID?19 VACCINE NOS. [Concomitant]
     Active Substance: COVID-19 VACCINE NOS
     Dosage: PFIZER
     Route: 030
     Dates: start: 20210428, end: 20210428

REACTIONS (5)
  - Impaired healing [Recovering/Resolving]
  - Pulmonary fibrosis [Recovered/Resolved]
  - Anal abscess [Recovered/Resolved]
  - Incision site pain [Recovered/Resolved]
  - Pneumothorax [Recovering/Resolving]

NARRATIVE: CASE EVENT DATE: 2021
